FAERS Safety Report 6552271-3 (Version None)
Quarter: 2010Q1

REPORT INFORMATION
  Report Type: 
  Country: None (occurrence: None)
  Receive Date: 20100126
  Receipt Date: 20100120
  Transmission Date: 20100710
  Serious: Yes (Hospitalization, Other)
  Sender: FDA-Public Use
  Company Number: FR-ABBOTT-10P-056-0620571-00

PATIENT
  Sex: Female

DRUGS (3)
  1. KALETRA [Suspect]
     Indication: PROPHYLAXIS AGAINST HIV INFECTION
     Dosage: 4 DOSAGE FORMS DAILY
     Route: 048
     Dates: start: 20091027
  2. PANENZA [Suspect]
     Indication: INFLUENZA IMMUNISATION
     Route: 030
     Dates: start: 20091124, end: 20091124
  3. COMBIVIR [Suspect]
     Indication: PROPHYLAXIS AGAINST HIV INFECTION
     Route: 048
     Dates: start: 20091027

REACTIONS (1)
  - ABORTION SPONTANEOUS [None]
